FAERS Safety Report 20814598 (Version 2)
Quarter: 2022Q2

REPORT INFORMATION
  Report Type: Spontaneous
  Country: US (occurrence: US)
  Receive Date: 20220511
  Receipt Date: 20220531
  Transmission Date: 20220721
  Serious: Yes (Death, Other)
  Sender: FDA-Public Use
  Company Number: US-BRISTOL-MYERS SQUIBB COMPANY-2022-037327

PATIENT
  Age: 61 Year
  Sex: Male

DRUGS (2)
  1. VIDAZA [Suspect]
     Active Substance: AZACITIDINE
     Indication: Myelodysplastic syndrome
     Dosage: DOSE : 180MG;     FREQ : 1-5  THEN DAYS 8-9 THEN EVERY 28 DAYS?STRENGTH:  14 100MG VIALS
     Route: 065
  2. VIDAZA [Suspect]
     Active Substance: AZACITIDINE
     Dosage: FREQ : 0.5
     Route: 065

REACTIONS (2)
  - Death [Fatal]
  - Off label use [Unknown]

NARRATIVE: CASE EVENT DATE: 20220418
